FAERS Safety Report 17827650 (Version 1)
Quarter: 2020Q2

REPORT INFORMATION
  Report Type: Spontaneous
  Country: US (occurrence: US)
  Receive Date: 20200527
  Receipt Date: 20200527
  Transmission Date: 20200714
  Serious: No
  Sender: FDA-Public Use
  Company Number: NVSC2020US145414

PATIENT
  Sex: Male

DRUGS (2)
  1. MEKINIST [Suspect]
     Active Substance: TRAMETINIB DIMETHYL SULFOXIDE
     Indication: PLASMA CELL MYELOMA
     Dosage: 2 MG (THREE DAYS WEEKLY)
     Route: 048
     Dates: start: 20200318
  2. TAFINLAR [Suspect]
     Active Substance: DABRAFENIB MESYLATE
     Indication: PLASMA CELL MYELOMA
     Dosage: 50 MG, Q12H
     Route: 048
     Dates: start: 20200317

REACTIONS (1)
  - Drug ineffective [Unknown]
